FAERS Safety Report 4421604-6 (Version None)
Quarter: 2004Q3

REPORT INFORMATION
  Report Type: 
  Country: None (occurrence: None)
  Receive Date: 20040804
  Receipt Date: 20040720
  Transmission Date: 20050211
  Serious: Yes (Hospitalization)
  Sender: FDA-Public Use
  Company Number: A02200402274

PATIENT
  Age: 47 Year
  Sex: Female

DRUGS (3)
  1. STILNOX (ZOLPIDEM) - TABLET - 10 MG [Suspect]
     Dosage: 10 MG OD,
     Route: 048
     Dates: start: 20040528, end: 20040603
  2. XANAX [Suspect]
     Dosage: 0.25 MG BID
     Route: 048
     Dates: start: 20040528, end: 20040603
  3. CEMAFLAVONE - (CITROFLAVONOIDS/ASCORBIC MAGNESIUM) - SOLUTION - 1084 M [Suspect]
     Dosage: 1084 MG BID
     Route: 048
     Dates: start: 20040528, end: 20040603

REACTIONS (2)
  - ANGIONEUROTIC OEDEMA [None]
  - HYPERSENSITIVITY [None]
